FAERS Safety Report 6490085-3 (Version None)
Quarter: 2009Q4

REPORT INFORMATION
  Report Type: 
  Country: None (occurrence: None)
  Receive Date: 20091211
  Receipt Date: 20090116
  Transmission Date: 20100525
  Serious: No
  Sender: FDA-Public Use
  Company Number: A0763947A

PATIENT
  Age: 40 Year
  Sex: Male

DRUGS (2)
  1. FLONASE [Suspect]
     Dosage: 1SPR PER DAY
     Route: 045
     Dates: start: 20080701, end: 20080701
  2. NO CONCURRENT MEDICATION [Concomitant]

REACTIONS (1)
  - HEADACHE [None]
